FAERS Safety Report 23114049 (Version 1)
Quarter: 2023Q4

REPORT INFORMATION
  Report Type: Spontaneous
  Country: US (occurrence: US)
  Receive Date: 20231027
  Receipt Date: 20231027
  Transmission Date: 20240110
  Serious: No
  Sender: FDA-Public Use
  Company Number: US-GALDERMA-US2023014869

PATIENT

DRUGS (2)
  1. DIFFERIN GEL [Suspect]
     Active Substance: ADAPALENE
     Indication: Product used for unknown indication
     Dosage: 1 DOSAGE FORM, QD
     Route: 061
     Dates: start: 20230929
  2. DIFFERIN MAX STRENGTH ACNE FOAMING BPO CLEANSER [Suspect]
     Active Substance: BENZOYL PEROXIDE
     Indication: Product used for unknown indication
     Dosage: 1 DOSAGE FORM, BID
     Route: 061
     Dates: start: 20230929

REACTIONS (4)
  - Erythema [Recovered/Resolved]
  - Skin burning sensation [Not Recovered/Not Resolved]
  - Chemical burn of skin [Unknown]
  - Skin irritation [Unknown]

NARRATIVE: CASE EVENT DATE: 20230101
